FAERS Safety Report 15954245 (Version 1)
Quarter: 2019Q1

REPORT INFORMATION
  Report Type: Spontaneous
  Country: IT (occurrence: IT)
  Receive Date: 20190212
  Receipt Date: 20190212
  Transmission Date: 20190417
  Serious: Yes (Other)
  Sender: FDA-Public Use
  Company Number: IT-JNJFOC-20190207055

PATIENT

DRUGS (1)
  1. EVICEL [Suspect]
     Active Substance: FIBRINOGEN HUMAN\THROMBIN HUMAN
     Indication: HAEMOSTASIS
     Route: 061

REACTIONS (7)
  - Haematoma [Unknown]
  - Seroma [Unknown]
  - Product use in unapproved indication [Unknown]
  - Urinary retention [Unknown]
  - Procedural pain [Unknown]
  - Hernia [Unknown]
  - Off label use [Unknown]
